FAERS Safety Report 8389719-8 (Version None)
Quarter: 2012Q1

REPORT INFORMATION
  Report Type: 
  Country: None (occurrence: None)
  Receive Date: 20120323
  Receipt Date: 20110421
  Transmission Date: 20120608
  Serious: Yes (Other)
  Sender: FDA-Public Use
  Company Number: 163-21880-11032274

PATIENT
  Age: 66 Year
  Sex: Male

DRUGS (7)
  1. VELCADE [Concomitant]
  2. ADALAT [Concomitant]
  3. CYTOXAN [Concomitant]
  4. DILATREND (CARVEDILOL) (UNKNOWN) [Concomitant]
  5. REVLIMID [Suspect]
     Indication: MULTIPLE MYELOMA
     Dosage: 15 MG, QD X 14, PO
     Route: 048
     Dates: start: 20110309
  6. DECADRON [Concomitant]
  7. CANDESARTAN (CANDESARTAN) (UNKNOWN) [Concomitant]

REACTIONS (2)
  - EPISTAXIS [None]
  - FULL BLOOD COUNT DECREASED [None]
